FAERS Safety Report 24429427 (Version 1)
Quarter: 2024Q4

REPORT INFORMATION
  Report Type: Other
  Country: CN (occurrence: CN)
  Receive Date: 20241011
  Receipt Date: 20241011
  Transmission Date: 20250115
  Serious: Yes (Other)
  Sender: BIONPHARMA
  Company Number: CN-Bion-014052

PATIENT
  Age: 67 Year
  Sex: Male

DRUGS (3)
  1. ENALAPRIL [Suspect]
     Active Substance: ENALAPRIL
     Indication: Product used for unknown indication
  2. DEXAMETHASONE [Suspect]
     Active Substance: DEXAMETHASONE
     Indication: Mucous membrane pemphigoid
     Dosage: 0.5% DEXAMETHASONE AT A 1:10 RATIO
  3. BETAMETHASONE [Concomitant]
     Active Substance: BETAMETHASONE
     Indication: Mucous membrane pemphigoid
     Dosage: 0.5% BETAMETHASONE AT A 1:1 RATIO

REACTIONS (2)
  - Mucous membrane pemphigoid [Recovered/Resolved]
  - Drug ineffective [Not Recovered/Not Resolved]
